FAERS Safety Report 22217250 (Version 1)
Quarter: 2023Q2

REPORT INFORMATION
  Report Type: Spontaneous
  Country: US (occurrence: US)
  Receive Date: 20230417
  Receipt Date: 20230417
  Transmission Date: 20230721
  Serious: No
  Sender: FDA-Public Use
  Company Number: US-BRISTOL-MYERS SQUIBB COMPANY-2023-051917

PATIENT
  Age: 37 Year
  Sex: Female
  Weight: 57.2 kg

DRUGS (3)
  1. OZANIMOD [Suspect]
     Active Substance: OZANIMOD
     Indication: Crohn^s disease
     Route: 048
     Dates: start: 20210304, end: 20210307
  2. OZANIMOD [Suspect]
     Active Substance: OZANIMOD
     Route: 048
     Dates: start: 20210308, end: 20210310
  3. OZANIMOD [Suspect]
     Active Substance: OZANIMOD
     Route: 048
     Dates: start: 20210311, end: 20211230

REACTIONS (1)
  - Loss of therapeutic response [Unknown]
